FAERS Safety Report 7369221-2 (Version None)
Quarter: 2011Q1

REPORT INFORMATION
  Report Type: 
  Country: None (occurrence: None)
  Receive Date: 20110323
  Receipt Date: 20110310
  Transmission Date: 20110831
  Serious: Yes (Hospitalization)
  Sender: FDA-Public Use
  Company Number: CA-AMGEN-CANSP2011012243

PATIENT
  Age: 52 Year
  Sex: Female
  Weight: 63.5 kg

DRUGS (2)
  1. ENBREL [Suspect]
     Dosage: 25 MG, 2 TIMES/WK
     Dates: start: 20021030
  2. ENBREL [Suspect]
     Indication: RHEUMATOID ARTHRITIS
     Dosage: 50 MG, QWK
     Route: 058
     Dates: start: 20030101

REACTIONS (8)
  - ABDOMINAL SEPSIS [None]
  - DIVERTICULUM [None]
  - PELVIC ABSCESS [None]
  - PYREXIA [None]
  - APPENDICITIS PERFORATED [None]
  - WHITE BLOOD CELL COUNT INCREASED [None]
  - ABDOMINAL PAIN UPPER [None]
  - ASCITES [None]
